FAERS Safety Report 6189519-3 (Version None)
Quarter: 2009Q2

REPORT INFORMATION
  Report Type: 
  Country: None (occurrence: None)
  Receive Date: 20090514
  Receipt Date: 20090508
  Transmission Date: 20091009
  Serious: Yes (Hospitalization)
  Sender: FDA-Public Use
  Company Number: BR-ASTRAZENECA-2009UW11976

PATIENT
  Age: 62 Year
  Sex: Female
  Weight: 70 kg

DRUGS (1)
  1. ATACAND [Suspect]
     Indication: HYPERTENSION
     Route: 048
     Dates: start: 20090326, end: 20090507

REACTIONS (5)
  - GROIN PAIN [None]
  - HYPERTENSION [None]
  - HYPERTONIC BLADDER [None]
  - PAIN IN EXTREMITY [None]
  - POLLAKIURIA [None]
